FAERS Safety Report 7757279-8 (Version None)
Quarter: 2011Q3

REPORT INFORMATION
  Report Type: 
  Country: None (occurrence: None)
  Receive Date: 20110916
  Receipt Date: 20110909
  Transmission Date: 20111222
  Serious: Yes (Hospitalization, Other)
  Sender: FDA-Public Use
  Company Number: US-AMGEN-USASP2011046506

PATIENT
  Age: 54 Year
  Sex: Female

DRUGS (1)
  1. ENBREL [Suspect]
     Indication: RHEUMATOID ARTHRITIS
     Dosage: 50 MG, QWK
     Dates: start: 20090801

REACTIONS (8)
  - CYSTITIS [None]
  - CYTOMEGALOVIRUS INFECTION [None]
  - EPSTEIN-BARR VIRUS INFECTION [None]
  - NERVE INJURY [None]
  - MYOCARDITIS [None]
  - INTERVERTEBRAL DISC DEGENERATION [None]
  - PERICARDITIS [None]
  - STAPHYLOCOCCAL INFECTION [None]
